FAERS Safety Report 9376421 (Version 7)
Quarter: 2014Q4

REPORT INFORMATION
  Report Type: Report from Study
  Country: FR (occurrence: FR)
  Receive Date: 20130701
  Receipt Date: 20141128
  Transmission Date: 20150529
  Serious: Yes (Hospitalization, Disabling)
  Sender: FDA-Public Use
  Company Number: FR-ROCHE-1243174

PATIENT
  Age: 73 Year
  Sex: Male
  Weight: 76 kg

DRUGS (8)
  1. CARDENSIEL [Concomitant]
     Active Substance: BISOPROLOL FUMARATE
     Route: 048
     Dates: start: 1990
  2. RIBAVIRIN. [Suspect]
     Active Substance: RIBAVIRIN
     Indication: HEPATITIS C
     Route: 048
     Dates: start: 20130122, end: 20130410
  3. AERIUS (FRANCE) [Concomitant]
     Indication: RASH
     Route: 048
     Dates: start: 20130128
  4. TELAPREVIR [Suspect]
     Active Substance: TELAPREVIR
     Indication: HEPATITIS C
     Route: 048
     Dates: start: 20130122, end: 20130410
  5. LASILIX [Concomitant]
     Active Substance: FUROSEMIDE
     Indication: HYPERTENSION
     Route: 048
     Dates: start: 201010
  6. SINTROM [Concomitant]
     Active Substance: ACENOCOUMAROL
     Indication: CARDIOMYOPATHY
     Route: 048
     Dates: start: 201010
  7. PEGINTERFERON ALFA-2A [Suspect]
     Active Substance: PEGINTERFERON ALFA-2A
     Indication: HEPATITIS C
     Route: 058
     Dates: start: 20130122, end: 20130410
  8. DIFFU K [Concomitant]
     Active Substance: POTASSIUM CHLORIDE
     Indication: HYPOKALAEMIA
     Route: 048
     Dates: start: 201010

REACTIONS (10)
  - Confusional state [Recovered/Resolved]
  - Muscle haemorrhage [Recovering/Resolving]
  - Motor dysfunction [Not Recovered/Not Resolved]
  - Vascular purpura [Recovered/Resolved]
  - General physical health deterioration [Recovering/Resolving]
  - Epistaxis [Unknown]
  - Cardiac failure [Recovered/Resolved]
  - Hepatocellular injury [Recovered/Resolved]
  - Overdose [Unknown]
  - Urinary retention [Unknown]

NARRATIVE: CASE EVENT DATE: 20130130
